FAERS Safety Report 6887401-7 (Version None)
Quarter: 2010Q3

REPORT INFORMATION
  Report Type: 
  Country: None (occurrence: None)
  Receive Date: 20100730
  Receipt Date: 20100526
  Transmission Date: 20110219
  Serious: No
  Sender: FDA-Public Use
  Company Number: A0844594A

PATIENT
  Age: 65 Year
  Sex: Female

DRUGS (6)
  1. SUMATRIPTAN SUCCINATE [Suspect]
     Indication: MIGRAINE
     Dosage: 50MG AS REQUIRED
     Route: 048
     Dates: start: 20091101
  2. LEVOXYL [Concomitant]
     Dosage: 5MCG PER DAY
  3. LEXAPRO [Concomitant]
     Dosage: 20MGD PER DAY
  4. LOVASTATIN [Concomitant]
     Dosage: 20MGD PER DAY
  5. XANAX [Concomitant]
     Dosage: .5MGD PER DAY
  6. IBUPROFEN [Concomitant]
     Dosage: 600MG AS REQUIRED

REACTIONS (2)
  - DRUG INEFFECTIVE [None]
  - PRODUCT QUALITY ISSUE [None]
